FAERS Safety Report 5786137-3 (Version None)
Quarter: 2008Q2

REPORT INFORMATION
  Report Type: 
  Country: None (occurrence: None)
  Receive Date: 20080624
  Receipt Date: 20080623
  Transmission Date: 20081010
  Serious: Yes (Other)
  Sender: FDA-Public Use
  Company Number: A0718326A

PATIENT
  Sex: Female
  Weight: 95 kg

DRUGS (1)
  1. ALLI [Suspect]
     Indication: WEIGHT LOSS DIET
     Route: 048
     Dates: start: 20080201

REACTIONS (15)
  - ANOREXIA [None]
  - ASTHENIA [None]
  - ASTHMA [None]
  - BRONCHITIS [None]
  - DRUG INEFFECTIVE [None]
  - DYSPNOEA [None]
  - GASTROINTESTINAL DISORDER [None]
  - ILL-DEFINED DISORDER [None]
  - INFLUENZA [None]
  - MALAISE [None]
  - PYREXIA [None]
  - THIRST [None]
  - UPPER RESPIRATORY TRACT INFECTION [None]
  - WEIGHT FLUCTUATION [None]
  - WEIGHT INCREASED [None]
